FAERS Safety Report 5073537-2 (Version None)
Quarter: 2006Q3

REPORT INFORMATION
  Report Type: 
  Country: None (occurrence: None)
  Receive Date: 20060717
  Receipt Date: 20051217
  Transmission Date: 20061208
  Serious: No
  Sender: FDA-Public Use
  Company Number: 2005002431

PATIENT
  Age: 69 Year
  Sex: Female

DRUGS (4)
  1. TARCEVA [Suspect]
     Indication: LUNG NEOPLASM MALIGNANT
     Dosage: 150 MG (QD), ORAL
     Route: 048
     Dates: start: 20051105
  2. METFORMIN [Concomitant]
  3. ACTOS [Concomitant]
  4. ALTASE [Concomitant]

REACTIONS (5)
  - DRY SKIN [None]
  - DYSPHAGIA [None]
  - MYALGIA [None]
  - NAUSEA [None]
  - RASH [None]
